FAERS Safety Report 4376268-7 (Version None)
Quarter: 2004Q2

REPORT INFORMATION
  Report Type: 
  Country: None (occurrence: None)
  Receive Date: 20040611
  Receipt Date: 20040604
  Transmission Date: 20050107
  Serious: Yes (Death, Life-Threatening, Hospitalization)
  Sender: FDA-Public Use
  Company Number: FR-MERCK-0406FRA00021

PATIENT
  Age: 91 Year
  Sex: Female

DRUGS (6)
  1. ALPRAZOLAM [Concomitant]
     Route: 048
     Dates: start: 20040423
  2. MODAMIDE [Concomitant]
     Indication: HYPERTENSION
     Route: 048
  3. CITALOPRAM HYDROBROMIDE [Concomitant]
     Route: 048
     Dates: start: 20040427
  4. HYDROCHLOROTHIAZIDE [Concomitant]
     Indication: HYPERTENSION
     Route: 048
  5. VIOXX [Suspect]
     Indication: ARTHRALGIA
     Route: 048
     Dates: start: 20040421, end: 20040427
  6. TAMSULOSIN HYDROCHLORIDE [Concomitant]
     Indication: URINARY RETENTION
     Route: 048
     Dates: start: 20040427

REACTIONS (5)
  - ANAEMIA [None]
  - CARDIAC ARREST [None]
  - DUODENAL ULCER [None]
  - GASTRIC PERFORATION [None]
  - HYPOTENSION [None]
